FAERS Safety Report 11951350 (Version 1)
Quarter: 2016Q1

REPORT INFORMATION
  Report Type: Spontaneous
  Country: RO (occurrence: RO)
  Receive Date: 20160125
  Receipt Date: 20160125
  Transmission Date: 20160526
  Serious: Yes (Life-Threatening, Hospitalization, Other)
  Sender: FDA-Public Use
  Company Number: RO-ABBVIE-16P-135-1543188-00

PATIENT
  Age: 74 Year
  Sex: Male
  Weight: 65 kg

DRUGS (9)
  1. EXVIERA [Suspect]
     Active Substance: DASABUVIR
     Indication: HEPATITIS C
     Route: 048
     Dates: start: 20160106, end: 20160115
  2. REBETOL [Suspect]
     Active Substance: RIBAVIRIN
     Indication: HEPATITIS C
     Dosage: 3 CAPSULES IN AM, 2 IN PM
     Route: 048
     Dates: start: 20160106, end: 20160115
  3. FLECAIN [Concomitant]
     Indication: ARRHYTHMIA PROPHYLAXIS
     Dosage: 100 MG X 2 / DAY
     Route: 048
     Dates: start: 2014
  4. VIEKIRAX [Suspect]
     Active Substance: OMBITASVIR\PARITAPREVIR\RITONAVIR
     Indication: HEPATITIS C
     Route: 048
     Dates: start: 20160106, end: 20160115
  5. LERIDIP [Concomitant]
     Indication: HYPERTENSION
     Dosage: 10 MG X 2/DAY
     Route: 048
     Dates: start: 2014, end: 20160115
  6. LERIDIP [Concomitant]
     Indication: PROPHYLAXIS
  7. FUROSEMID [Concomitant]
     Active Substance: FUROSEMIDE
     Indication: HYPERTENSION
     Dates: start: 2014, end: 20160116
  8. SPIRONOLACTONE. [Concomitant]
     Active Substance: SPIRONOLACTONE
     Indication: CARDIAC FAILURE
     Route: 048
     Dates: start: 2014, end: 20160115
  9. FUROSEMID [Concomitant]
     Active Substance: FUROSEMIDE
     Indication: PROPHYLAXIS

REACTIONS (4)
  - Dyspnoea [Unknown]
  - Fatigue [Unknown]
  - Blood urea increased [Recovering/Resolving]
  - Rhythm idioventricular [Recovered/Resolved]

NARRATIVE: CASE EVENT DATE: 20160118
